FAERS Safety Report 9353014 (Version 3)
Quarter: 2013Q3

REPORT INFORMATION
  Report Type: Spontaneous
  Country: FR (occurrence: FR)
  Receive Date: 20130618
  Receipt Date: 20130719
  Transmission Date: 20140515
  Serious: Yes (Hospitalization)
  Sender: FDA-Public Use
  Company Number: FR-ROCHE-1238108

PATIENT
  Age: 82 Year
  Sex: Female

DRUGS (7)
  1. ZELBORAF [Suspect]
     Indication: METASTATIC MALIGNANT MELANOMA
     Route: 048
     Dates: start: 20130417, end: 20130515
  2. ZELBORAF [Suspect]
     Dosage: DOSE REDUCED
     Route: 048
     Dates: start: 20130515, end: 20130524
  3. METFORMIN [Concomitant]
  4. FLUDEX (FRANCE) [Concomitant]
  5. KARDEGIC [Concomitant]
  6. KALEORID [Concomitant]
  7. DOLIPRANE [Concomitant]

REACTIONS (1)
  - Drug reaction with eosinophilia and systemic symptoms [Recovered/Resolved]
